FAERS Safety Report 9712690 (Version 1)
Quarter: 2013Q4

REPORT INFORMATION
  Report Type: Spontaneous
  Country: US (occurrence: US)
  Receive Date: 20131126
  Receipt Date: 20131126
  Transmission Date: 20140711
  Serious: No
  Sender: FDA-Public Use
  Company Number: US-BRISTOL-MYERS SQUIBB COMPANY-18901116

PATIENT
  Age: 80 Year
  Sex: Male
  Weight: 92.97 kg

DRUGS (6)
  1. BYDUREON [Suspect]
     Dosage: LAST BYDUREON:13MAY2013
  2. METFORMIN [Concomitant]
  3. GLIPIZIDE [Concomitant]
  4. PLAVIX [Concomitant]
  5. PRAVASTATIN SODIUM [Concomitant]
  6. RAMIPRIL [Concomitant]

REACTIONS (6)
  - Vomiting [Recovered/Resolved]
  - Dyspepsia [Recovered/Resolved]
  - Diarrhoea [Recovered/Resolved]
  - Flatulence [Recovered/Resolved]
  - Eructation [Not Recovered/Not Resolved]
  - Weight decreased [Unknown]
